FAERS Safety Report 11413015 (Version 1)
Quarter: 2015Q3

REPORT INFORMATION
  Report Type: Spontaneous
  Country: US (occurrence: US)
  Receive Date: 20150824
  Receipt Date: 20150824
  Transmission Date: 20151125
  Serious: Yes (Hospitalization, Other)
  Sender: FDA-Public Use
  Company Number: US-RECKITT BENCKISER PHARMACEUTICAL, INC-RB-082251-2015

PATIENT
  Sex: Female

DRUGS (4)
  1. SUBUTEX [Suspect]
     Active Substance: BUPRENORPHINE HYDROCHLORIDE
     Indication: DRUG DEPENDENCE
     Dosage: UNK
     Route: 064
  2. METHADONE [Suspect]
     Active Substance: METHADONE HYDROCHLORIDE
     Indication: DRUG DEPENDENCE
     Dosage: UNK
     Route: 064
  3. HEROIN [Suspect]
     Active Substance: DIACETYLMORPHINE
     Indication: PRODUCT USED FOR UNKNOWN INDICATION
     Dosage: UNK
     Route: 064
  4. HEROIN [Suspect]
     Active Substance: DIACETYLMORPHINE
     Dosage: UNK
     Route: 064

REACTIONS (8)
  - Crying [Recovered/Resolved]
  - Foetal exposure during pregnancy [Recovered/Resolved]
  - Diarrhoea neonatal [Recovered/Resolved]
  - Hyperhidrosis [Recovered/Resolved]
  - Drug withdrawal syndrome neonatal [Recovered/Resolved]
  - Feeding disorder of infancy or early childhood [Recovered/Resolved]
  - Tremor neonatal [Recovered/Resolved]
  - Insomnia [Recovered/Resolved]
